FAERS Safety Report 5319777-6 (Version None)
Quarter: 2007Q1

REPORT INFORMATION
  Report Type: 
  Country: None (occurrence: None)
  Receive Date: 20070202
  Receipt Date: 20060504
  Transmission Date: 20070707
  Serious: Yes (Other)
  Sender: FDA-Public Use
  Company Number: 2006024785

PATIENT
  Age: 83 Year
  Sex: Female
  Weight: 70.3075 kg

DRUGS (10)
  1. AROMASIN [Suspect]
     Indication: BREAST CANCER
     Dosage: 25 MG (25 MG, 1 IN 1 D), ORAL
     Route: 048
     Dates: start: 20060112, end: 20060214
  2. NAPROXEN [Concomitant]
  3. DYAZIDE [Concomitant]
  4. METOPROLOL TARTRATE [Concomitant]
  5. XALATAN [Concomitant]
  6. TYLENOL [Concomitant]
  7. MULTIVITAMINS (MILTIVITAMINS) [Concomitant]
  8. CALCIUM (CALCIUM) [Concomitant]
  9. VITAMINS B6  (VITAMINS B6) [Concomitant]
  10. VITAMIN B12 [Concomitant]

REACTIONS (3)
  - ALANINE AMINOTRANSFERASE INCREASED [None]
  - ASPARTATE AMINOTRANSFERASE INCREASED [None]
  - BLOOD BILIRUBIN INCREASED [None]
